FAERS Safety Report 11107779 (Version 1)
Quarter: 2015Q2

REPORT INFORMATION
  Report Type: Report from Study
  Country: US (occurrence: US)
  Receive Date: 20150512
  Receipt Date: 20150512
  Transmission Date: 20150821
  Serious: Yes (Hospitalization)
  Sender: FDA-Public Use
  Company Number: US-PURDUE PHARMA-USA-2014-0117794

PATIENT
  Age: 59 Year
  Sex: Male

DRUGS (3)
  1. OXYCONTIN [Suspect]
     Active Substance: OXYCODONE HYDROCHLORIDE
     Indication: BACK PAIN
     Dosage: 60 MG, Q12H
     Route: 048
     Dates: start: 201504
  2. OXYCONTIN [Suspect]
     Active Substance: OXYCODONE HYDROCHLORIDE
     Dosage: UNK
     Route: 048
     Dates: start: 2002
  3. OXYCONTIN [Suspect]
     Active Substance: OXYCODONE HYDROCHLORIDE
     Indication: INTERVERTEBRAL DISC DISPLACEMENT
     Dosage: 80 MG, BID
     Route: 048
     Dates: start: 20140822, end: 20140922

REACTIONS (6)
  - Joint swelling [Unknown]
  - Hypokinesia [Unknown]
  - Pain [Unknown]
  - Device related infection [Not Recovered/Not Resolved]
  - Drug withdrawal syndrome [Unknown]
  - Hyperhidrosis [Unknown]

NARRATIVE: CASE EVENT DATE: 20140923
